FAERS Safety Report 8483975-3 (Version None)
Quarter: 2012Q3

REPORT INFORMATION
  Report Type: 
  Country: None (occurrence: None)
  Receive Date: 20120703
  Receipt Date: 20120703
  Transmission Date: 20120928
  Serious: No
  Sender: FDA-Public Use
  Company Number: US-PFIZER INC-2012090335

PATIENT
  Sex: Male
  Weight: 76.19 kg

DRUGS (1)
  1. METHOTREXATE SODIUM [Suspect]

REACTIONS (1)
  - DRUG HYPERSENSITIVITY [None]
